FAERS Safety Report 13095012 (Version 1)
Quarter: 2017Q1

REPORT INFORMATION
  Report Type: Report from Study
  Country: BR (occurrence: BR)
  Receive Date: 20170106
  Receipt Date: 20170106
  Transmission Date: 20170428
  Serious: Yes (Hospitalization)
  Sender: FDA-Public Use
  Company Number: BR-BAXALTA-2017BLT000054

PATIENT
  Age: 18 Year
  Sex: Male
  Weight: 70 kg

DRUGS (1)
  1. FEIBA [Suspect]
     Active Substance: ANTI-INHIBITOR COAGULANT COMPLEX
     Indication: PROPHYLAXIS
     Dosage: 5000 U/MG
     Route: 065

REACTIONS (1)
  - Haematuria [Recovered/Resolved]

NARRATIVE: CASE EVENT DATE: 20161218
